FAERS Safety Report 13539811 (Version 1)
Quarter: 2017Q2

REPORT INFORMATION
  Report Type: Spontaneous
  Country: US (occurrence: US)
  Receive Date: 20170512
  Receipt Date: 20170512
  Transmission Date: 20170830
  Serious: No
  Sender: FDA-Public Use
  Company Number: US-JNJFOC-20170428972

PATIENT
  Sex: Male

DRUGS (7)
  1. NICOTROL [Concomitant]
     Active Substance: NICOTINE
     Route: 065
  2. INVEGA SUSTENNA [Suspect]
     Active Substance: PALIPERIDONE PALMITATE
     Indication: PRODUCT USED FOR UNKNOWN INDICATION
     Route: 030
  3. MELATONIN [Concomitant]
     Active Substance: MELATONIN
     Dosage: 3 UNITS UNSPECIFIED
     Route: 065
  4. HYDROCODONE BITARTRATE AND ACETAMINOPHEN [Concomitant]
     Active Substance: ACETAMINOPHEN\HYDROCODONE BITARTRATE
     Dosage: 5/325 STRENGTH
     Route: 065
  5. IBUPROFEN. [Concomitant]
     Active Substance: IBUPROFEN
     Dosage: 600 UNITS UNSPECIFIED
     Route: 065
  6. ACETAMINOPHEN. [Concomitant]
     Active Substance: ACETAMINOPHEN
     Dosage: 325 MG STRENGTH
     Route: 065
  7. LORAZEPAM. [Concomitant]
     Active Substance: LORAZEPAM
     Dosage: 0.5/2 UNITS UNSPECIFIED
     Route: 065

REACTIONS (1)
  - Expired product administered [Unknown]
